FAERS Safety Report 5878544-5 (Version None)
Quarter: 2008Q3

REPORT INFORMATION
  Report Type: 
  Country: None (occurrence: None)
  Receive Date: 20080911
  Receipt Date: 20080909
  Transmission Date: 20090109
  Serious: Yes (Other)
  Sender: FDA-Public Use
  Company Number: IN-BAXTER-2008BH009556

PATIENT
  Sex: Male

DRUGS (1)
  1. LACTATED RINGERS INJECTION IN GLASS CONTAINER [Suspect]
     Indication: DRUG USE FOR UNKNOWN INDICATION
     Route: 042
     Dates: start: 20080905, end: 20080905

REACTIONS (2)
  - PHLEBITIS [None]
  - PYREXIA [None]
